FAERS Safety Report 7371632-6 (Version None)
Quarter: 2011Q1

REPORT INFORMATION
  Report Type: 
  Country: None (occurrence: None)
  Receive Date: 20110324
  Receipt Date: 20110228
  Transmission Date: 20110831
  Serious: No
  Sender: FDA-Public Use
  Company Number: US-B.I. PHARMACEUTICALS,INC./RIDGEFIELD-2011-BP-04892BP

PATIENT
  Sex: Female

DRUGS (6)
  1. PRADAXA [Suspect]
     Dosage: 300 MG
     Route: 048
     Dates: start: 20110101
  2. HYZAAR [Concomitant]
     Indication: HYPERTENSION
  3. LEVOTHYROXINE SODIUM [Concomitant]
     Indication: HYPOTHYROIDISM
  4. K-DUR [Concomitant]
     Indication: OEDEMA PERIPHERAL
  5. LASIX [Concomitant]
     Indication: OEDEMA PERIPHERAL
  6. NITROGLYCERIN [Concomitant]
     Indication: ATRIAL FIBRILLATION

REACTIONS (5)
  - DYSGEUSIA [None]
  - THIRST [None]
  - DYSPEPSIA [None]
  - MALAISE [None]
  - DRY MOUTH [None]
